FAERS Safety Report 4386559-1 (Version None)
Quarter: 2004Q2

REPORT INFORMATION
  Report Type: 
  Country: None (occurrence: None)
  Receive Date: 20040623
  Receipt Date: 20040614
  Transmission Date: 20050107
  Serious: Yes (Other)
  Sender: FDA-Public Use
  Company Number: 2004034450

PATIENT
  Sex: Female

DRUGS (5)
  1. LIPITOR [Suspect]
     Indication: DYSLIPIDAEMIA
     Dosage: 10 MG (10 MG, INTERVAL: EVERY DAY), ORAL
     Route: 048
     Dates: start: 19990501
  2. ENALAPRIL MALEATE [Concomitant]
  3. ATENOLOL [Concomitant]
  4. PROPATYLNITRATE (PROPATYLNITRATE) [Concomitant]
  5. ACETYLSALICYLIC ACID SRT [Concomitant]

REACTIONS (5)
  - BENIGN RENAL NEOPLASM [None]
  - BONE PAIN [None]
  - HAEMORRHAGE [None]
  - MOVEMENT DISORDER [None]
  - RENAL PAIN [None]
